FAERS Safety Report 13113633 (Version 1)
Quarter: 2017Q1

REPORT INFORMATION
  Report Type: Spontaneous
  Country: CH (occurrence: FR)
  Receive Date: 20170113
  Receipt Date: 20170113
  Transmission Date: 20170428
  Serious: Yes (Other)
  Sender: FDA-Public Use
  Company Number: CH-LPDUSPRD-20170005

PATIENT
  Age: 36 Year
  Sex: Male

DRUGS (1)
  1. VENOFER [Suspect]
     Active Substance: IRON SUCROSE
     Dosage: 1 GRAM
     Route: 041
     Dates: start: 20161202, end: 20161202

REACTIONS (9)
  - Muscle spasms [Unknown]
  - Malaise [Unknown]
  - Paraesthesia [Unknown]
  - Wrong drug administered [Unknown]
  - Nausea [Unknown]
  - Headache [Unknown]
  - Overdose [Unknown]
  - Oedema peripheral [Unknown]
  - Incorrect dose administered [Unknown]

NARRATIVE: CASE EVENT DATE: 20161202
